FAERS Safety Report 10156042 (Version 2)
Quarter: 2014Q3

REPORT INFORMATION
  Report Type: Spontaneous
  Country: US (occurrence: US)
  Receive Date: 20140506
  Receipt Date: 20140806
  Transmission Date: 20150326
  Serious: Yes (Hospitalization, Other)
  Sender: FDA-Public Use
  Company Number: US-GILEAD-2014-0101652

PATIENT
  Age: 69 Year
  Sex: Female

DRUGS (16)
  1. MAGNESIUM [Concomitant]
     Active Substance: MAGNESIUM
  2. FERROUS SULFATE [Concomitant]
     Active Substance: FERROUS SULFATE\FERROUS SULFATE, DRIED
  3. CYMBALTA [Concomitant]
     Active Substance: DULOXETINE HYDROCHLORIDE
  4. WARFARIN [Concomitant]
     Active Substance: WARFARIN
  5. LANSOPRAZOLE. [Concomitant]
     Active Substance: LANSOPRAZOLE
  6. REVATIO [Concomitant]
     Active Substance: SILDENAFIL CITRATE
  7. DIGOXIN. [Concomitant]
     Active Substance: DIGOXIN
  8. GABAPENTIN. [Concomitant]
     Active Substance: GABAPENTIN
  9. LETAIRIS [Suspect]
     Active Substance: AMBRISENTAN
     Indication: PULMONARY ARTERIAL HYPERTENSION
     Dosage: 10 MG, QD
     Route: 065
     Dates: start: 20120801
  10. SPIRONOLACTONE. [Concomitant]
     Active Substance: SPIRONOLACTONE
  11. SYSTANE [Concomitant]
     Active Substance: HYPROMELLOSE 2910 (4000 MPA.S)
  12. ACETAMINOPHEN. [Concomitant]
     Active Substance: ACETAMINOPHEN
  13. NEOMYCIN [Concomitant]
     Active Substance: NEOMYCIN
  14. LASIX [Concomitant]
     Active Substance: FUROSEMIDE
  15. POTASSIUM [Concomitant]
     Active Substance: POTASSIUM
  16. ALBUTEROL                          /00139501/ [Concomitant]
     Active Substance: ALBUTEROL

REACTIONS (1)
  - Diverticulitis [Recovered/Resolved]
